FAERS Safety Report 15702112 (Version 1)
Quarter: 2018Q4

REPORT INFORMATION
  Report Type: Spontaneous
  Country: US (occurrence: US)
  Receive Date: 20181209
  Receipt Date: 20181209
  Transmission Date: 20190205
  Serious: No
  Sender: FDA-Public Use
  Company Number: US-ASTRAZENECA-2018SF49681

PATIENT
  Sex: Male

DRUGS (3)
  1. BYDUREON BCISE [Suspect]
     Active Substance: EXENATIDE
     Route: 058
     Dates: start: 201810
  2. VICTOZA [Suspect]
     Active Substance: LIRAGLUTIDE
     Dosage: DAILY
     Route: 065
  3. BYDUREON [Suspect]
     Active Substance: EXENATIDE
     Dosage: 2.0MG UNKNOWN
     Route: 058
     Dates: start: 20181111

REACTIONS (5)
  - Underdose [Unknown]
  - Injection site extravasation [Unknown]
  - Injection site bruising [Unknown]
  - Injection site haemorrhage [Unknown]
  - Device dispensing error [Not Recovered/Not Resolved]

NARRATIVE: CASE EVENT DATE: 201811
